FAERS Safety Report 13238751 (Version 1)
Quarter: 2017Q1

REPORT INFORMATION
  Report Type: Spontaneous
  Country: US (occurrence: US)
  Receive Date: 20170216
  Receipt Date: 20170216
  Transmission Date: 20170428
  Serious: Yes (Other)
  Sender: FDA-Public Use
  Company Number: US-CLINIGEN GROUP PLC/ CLINIGEN HEALTHCARE LTD-E2B_00002346

PATIENT
  Age: 70 Year
  Sex: Male
  Weight: 72 kg

DRUGS (3)
  1. ETHYOL [Suspect]
     Active Substance: AMIFOSTINE
     Indication: ADVERSE DRUG REACTION
     Dosage: 500 MG QD TIW
     Route: 058
     Dates: start: 20011001, end: 20011018
  2. CHEMOTHERAPY REGIMENS [Suspect]
     Active Substance: UNSPECIFIED INGREDIENT
     Indication: LIP AND/OR ORAL CAVITY CANCER
     Dosage: UNKNOWN
     Route: 065
  3. RADIATION THERAPY [Suspect]
     Active Substance: RADIATION THERAPY
     Indication: LIP AND/OR ORAL CAVITY CANCER
     Dosage: UNKNOWN
     Route: 050

REACTIONS (1)
  - Pancytopenia [Recovered/Resolved]

NARRATIVE: CASE EVENT DATE: 20011008
